FAERS Safety Report 9294918 (Version 2)
Quarter: 2013Q3

REPORT INFORMATION
  Report Type: Spontaneous
  Country: US (occurrence: US)
  Receive Date: 20130517
  Receipt Date: 20130819
  Transmission Date: 20140515
  Serious: No
  Sender: FDA-Public Use
  Company Number: US-PFIZER INC-2013151140

PATIENT
  Age: 80 Year
  Sex: Female
  Weight: 59 kg

DRUGS (9)
  1. LYRICA [Suspect]
     Indication: NEUROPATHY PERIPHERAL
     Dosage: 75MG BY TAKING THREE ORAL CAPSULES ONE IN THE MORNING AND TWO AT NIGHT
     Route: 048
     Dates: start: 2010, end: 2010
  2. LYRICA [Suspect]
     Dosage: 75 MG, 2X/DAY
     Route: 048
     Dates: start: 2010
  3. LYRICA [Suspect]
     Dosage: UNK
     Route: 048
  4. LIPITOR [Concomitant]
     Indication: BLOOD CHOLESTEROL INCREASED
     Dosage: UNK
  5. ASPIRIN [Concomitant]
     Dosage: 81 MG, 1X/DAY
  6. TRIAMTERENE [Concomitant]
     Dosage: UNK
  7. CENTRUM SILVER [Concomitant]
     Indication: VITAMIN SUPPLEMENTATION
     Dosage: UNK, 1X/DAY
  8. CENTRUM SILVER [Concomitant]
     Indication: MINERAL SUPPLEMENTATION
  9. VITAMIN E [Concomitant]
     Dosage: 4000 IU, 1X/DAY

REACTIONS (4)
  - Insomnia [Unknown]
  - Crying [Unknown]
  - Dysstasia [Unknown]
  - Pain in extremity [Unknown]
